FAERS Safety Report 26127693 (Version 1)
Quarter: 2025Q4

REPORT INFORMATION
  Report Type: Spontaneous
  Country: EU (occurrence: EU)
  Receive Date: 20251206
  Receipt Date: 20251206
  Transmission Date: 20260118
  Serious: Yes (Hospitalization, Other)
  Sender: AUROBINDO
  Company Number: EU-AEMPS-1779111

PATIENT
  Age: 39 Year
  Sex: Male
  Weight: 76 kg

DRUGS (9)
  1. LEVOFLOXACIN [Suspect]
     Active Substance: LEVOFLOXACIN
     Indication: Peritonsillar abscess
     Dosage: 500MG CADA 24 HORAS
     Dates: start: 20250904, end: 20250924
  2. LEVOFLOXACIN [Suspect]
     Active Substance: LEVOFLOXACIN
     Indication: Mediastinitis
  3. LINEZOLID [Suspect]
     Active Substance: LINEZOLID
     Indication: Peritonsillar abscess
     Dosage: 600MG CADA 12 HORAS
     Dates: start: 20250903, end: 20250924
  4. LINEZOLID [Suspect]
     Active Substance: LINEZOLID
     Indication: Mediastinitis
  5. AMOXICILLIN\CLAVULANIC ACID [Suspect]
     Active Substance: AMOXICILLIN\CLAVULANIC ACID
     Indication: Peritonsillar abscess
     Dosage: 2 DOSAGE FORM, FOUR TIMES/DAY
     Dates: start: 20250904, end: 20250924
  6. AMOXICILLIN\CLAVULANIC ACID [Suspect]
     Active Substance: AMOXICILLIN\CLAVULANIC ACID
     Indication: Mediastinitis
  7. ERYTHROMYCIN ETHYLSUCCINATE [Suspect]
     Active Substance: ERYTHROMYCIN ETHYLSUCCINATE
     Indication: Peritonsillar abscess
     Dosage: 250 MILLIGRAM, FOUR TIMES/DAY
     Dates: start: 20250903, end: 20251006
  8. ERYTHROMYCIN ETHYLSUCCINATE [Suspect]
     Active Substance: ERYTHROMYCIN ETHYLSUCCINATE
     Indication: Mediastinitis
  9. VALPROATE SODIUM [Suspect]
     Active Substance: VALPROATE SODIUM
     Indication: Epilepsy
     Dosage: 2400 MILLIGRAM, ONCE A DAY (
     Dates: start: 20250922, end: 20251006

REACTIONS (1)
  - Hepatitis cholestatic [Recovered/Resolved]

NARRATIVE: CASE EVENT DATE: 20251003
